FAERS Safety Report 18154285 (Version 1)
Quarter: 2020Q3

REPORT INFORMATION
  Report Type: Report from Study
  Country: None (occurrence: US)
  Receive Date: 20200817
  Receipt Date: 20200817
  Transmission Date: 20201103
  Serious: Yes (Other)
  Sender: FDA-Public Use
  Company Number: US-ABBVIE-20K-163-3381413-00

PATIENT
  Sex: Male

DRUGS (4)
  1. METHOTREXATE. [Concomitant]
     Active Substance: METHOTREXATE
     Indication: RHEUMATOID ARTHRITIS
  2. HUMIRA [Suspect]
     Active Substance: ADALIMUMAB
     Indication: RHEUMATOID ARTHRITIS
     Dosage: STOP DATE BETWEEN MAY AND APRIL
     Route: 058
     Dates: start: 2019, end: 2020
  3. FOLIC ACID. [Concomitant]
     Active Substance: FOLIC ACID
     Indication: ULCER
  4. PRILOSEC [Concomitant]
     Active Substance: OMEPRAZOLE MAGNESIUM
     Indication: DYSPEPSIA

REACTIONS (5)
  - Intervertebral disc degeneration [Recovering/Resolving]
  - Dysstasia [Recovering/Resolving]
  - Bronchitis [Recovering/Resolving]
  - Exostosis [Recovering/Resolving]
  - Sinusitis [Recovering/Resolving]

NARRATIVE: CASE EVENT DATE: 2020
